FAERS Safety Report 10009281 (Version 2)
Quarter: 2014Q1

REPORT INFORMATION
  Report Type: Spontaneous
  Country: US (occurrence: US)
  Receive Date: 20140313
  Receipt Date: 20140313
  Transmission Date: 20141002
  Serious: No
  Sender: FDA-Public Use
  Company Number: US-GILEAD-2013-0076904

PATIENT
  Sex: Female

DRUGS (2)
  1. LETAIRIS [Suspect]
     Indication: PULMONARY HYPERTENSION
     Dosage: 5 MG, QD
     Dates: start: 20130412, end: 201306
  2. LETAIRIS [Suspect]
     Dosage: 2.5 MG, QD
     Dates: start: 201306, end: 201306

REACTIONS (2)
  - Oedema peripheral [Unknown]
  - Dyspnoea [Unknown]
